FAERS Safety Report 7984319-3 (Version None)
Quarter: 2011Q4

REPORT INFORMATION
  Report Type: 
  Country: None (occurrence: None)
  Receive Date: 20111214
  Receipt Date: 20111129
  Transmission Date: 20120403
  Serious: Yes (Hospitalization)
  Sender: FDA-Public Use
  Company Number: 1000025457

PATIENT
  Age: 51 Year
  Sex: Male

DRUGS (9)
  1. CITALOPRAM HYDROBROMIDE [Suspect]
     Dosage: 40 MG (40 MG, 1 IN 1 D), ORAL, 30 MG (30 MG, 1 IN 1 D), ORAL, 10 MG (10 MG, 1 IN 1 D), ORAL
     Route: 048
     Dates: start: 20110811, end: 20110821
  2. CITALOPRAM HYDROBROMIDE [Suspect]
     Dosage: 40 MG (40 MG, 1 IN 1 D), ORAL, 30 MG (30 MG, 1 IN 1 D), ORAL, 10 MG (10 MG, 1 IN 1 D), ORAL
     Route: 048
     Dates: start: 20110721, end: 20110810
  3. CITALOPRAM HYDROBROMIDE [Suspect]
     Dosage: 40 MG (40 MG, 1 IN 1 D), ORAL, 30 MG (30 MG, 1 IN 1 D), ORAL, 10 MG (10 MG, 1 IN 1 D), ORAL
     Route: 048
     Dates: start: 20110519, end: 20110720
  4. MIRTAZAPINE [Suspect]
     Dosage: SEE IMAGE: ORAL
     Route: 048
     Dates: start: 20110727, end: 20110808
  5. MIRTAZAPINE [Suspect]
     Dosage: SEE IMAGE: ORAL
     Route: 048
     Dates: start: 20110809, end: 20110830
  6. MIRTAZAPINE [Suspect]
     Dosage: SEE IMAGE: ORAL
     Route: 048
     Dates: start: 20110831, end: 20110831
  7. MIRTAZAPINE [Suspect]
     Dosage: SEE IMAGE: ORAL
     Route: 048
     Dates: start: 20110901
  8. ZOPICLON (ZOPICLONE) [Concomitant]
  9. ATACAND [Concomitant]

REACTIONS (7)
  - WEIGHT INCREASED [None]
  - BLOOD CHOLESTEROL INCREASED [None]
  - ALANINE AMINOTRANSFERASE INCREASED [None]
  - GAMMA-GLUTAMYLTRANSFERASE INCREASED [None]
  - BLOOD ALKALINE PHOSPHATASE INCREASED [None]
  - POTENTIATING DRUG INTERACTION [None]
  - ASPARTATE AMINOTRANSFERASE INCREASED [None]
